FAERS Safety Report 18412270 (Version 1)
Quarter: 2020Q4

REPORT INFORMATION
  Report Type: Spontaneous
  Country: US (occurrence: US)
  Receive Date: 20201021
  Receipt Date: 20201021
  Transmission Date: 20210114
  Serious: Yes (Hospitalization, Other)
  Sender: FDA-Public Use
  Company Number: US-TEVA-2020-US-1840683

PATIENT
  Sex: Female

DRUGS (8)
  1. HYDROMORPHONE ORAL SOLUTION [Suspect]
     Active Substance: HYDROMORPHONE
     Route: 048
  2. HYSINGLA ER [Suspect]
     Active Substance: HYDROCODONE BITARTRATE
     Route: 065
  3. DILAUDID [Suspect]
     Active Substance: HYDROMORPHONE HYDROCHLORIDE
     Route: 065
  4. TRAMADOL. [Suspect]
     Active Substance: TRAMADOL
     Route: 065
  5. HYDROCODONE IR TABLETS [Suspect]
     Active Substance: HYDROCODONE
     Route: 065
  6. OPANA [Suspect]
     Active Substance: OXYMORPHONE HYDROCHLORIDE
     Route: 065
  7. HYDROCODONE [Suspect]
     Active Substance: HYDROCODONE
     Route: 065
  8. HYDROCODONE AND ACETAMINOPHEN [Suspect]
     Active Substance: ACETAMINOPHEN\HYDROCODONE
     Route: 065

REACTIONS (3)
  - Suicide attempt [Unknown]
  - Personal relationship issue [Unknown]
  - Drug dependence [Unknown]
